FAERS Safety Report 24333113 (Version 1)
Quarter: 2024Q3

REPORT INFORMATION
  Report Type: Spontaneous
  Country: CA (occurrence: CA)
  Receive Date: 20240918
  Receipt Date: 20240918
  Transmission Date: 20241017
  Serious: Yes (Hospitalization, Other)
  Sender: PFIZER
  Company Number: CA-PFIZER INC-202400257351

PATIENT
  Age: 40 Year

DRUGS (2)
  1. METHOTREXATE SODIUM [Suspect]
     Active Substance: METHOTREXATE SODIUM
     Dosage: 12.5 MG PO
     Route: 048
     Dates: start: 202405, end: 2024
  2. PLAQUENIL [Suspect]
     Active Substance: HYDROXYCHLOROQUINE SULFATE
     Dosage: 400 MG, 1X/DAY (400 MG PO ONCE A DAY)
     Route: 048
     Dates: start: 202405, end: 2024

REACTIONS (6)
  - Acute kidney injury [Unknown]
  - Pyrexia [Unknown]
  - Anaemia [Unknown]
  - Inflammation [Unknown]
  - Vasculitis [Unknown]
  - Renal disorder [Unknown]
